FAERS Safety Report 6474376 (Version 5)
Quarter: 2017Q1

REPORT INFORMATION
  Report Type: Spontaneous
  Country: JP (occurrence: JP)
  Receive Date: 20071126
  Receipt Date: 20170213
  Transmission Date: 20170429
  Serious: Yes (Other)
  Sender: FDA-Public Use
  Company Number: JP-BRISTOL-MYERS SQUIBB COMPANY-13990767

PATIENT
  Age: 65 Year
  Sex: Male

DRUGS (6)
  1. TAXOL [Suspect]
     Active Substance: PACLITAXEL
     Indication: LUNG NEOPLASM MALIGNANT
     Dosage: CYCEL 1: 1ST DOSE OF CHEMOTHERAPY 100MG/BODY
     Route: 041
     Dates: start: 20071113, end: 20071113
  2. PARAPLATIN [Suspect]
     Active Substance: CARBOPLATIN
     Indication: LUNG NEOPLASM MALIGNANT
     Dosage: CYCEL 1: 1ST DOSE OF CHEMOTHERAPY 300MG/BODY
     Route: 041
     Dates: start: 20071113, end: 20071113
  3. ZANTAC [Concomitant]
     Active Substance: RANITIDINE HYDROCHLORIDE
     Indication: PRODUCT USED FOR UNKNOWN INDICATION
     Dosage: 50 MG, QWK
     Route: 041
     Dates: start: 20071113, end: 20071113
  4. RESTAMIN [Concomitant]
     Active Substance: DIPHENHYDRAMINE
     Indication: PRODUCT USED FOR UNKNOWN INDICATION
     Dosage: 50 MG, QWK
     Route: 048
     Dates: start: 20071113, end: 20071113
  5. DECADRON [Concomitant]
     Active Substance: DEXAMETHASONE
     Indication: PRODUCT USED FOR UNKNOWN INDICATION
     Dosage: 20 MG, QWK
     Route: 041
     Dates: start: 20071113, end: 20071113
  6. NASEA [Concomitant]
     Active Substance: RAMOSETRON HYDROCHLORIDE
     Indication: PRODUCT USED FOR UNKNOWN INDICATION
     Dosage: .3 MG, QWK
     Route: 041
     Dates: start: 20071113, end: 20071113

REACTIONS (4)
  - Dyskinesia [Recovered/Resolved]
  - Anal incontinence [Not Recovered/Not Resolved]
  - Urinary incontinence [Not Recovered/Not Resolved]
  - Brain contusion [Unknown]

NARRATIVE: CASE EVENT DATE: 20071113
